FAERS Safety Report 22147721 (Version 1)
Quarter: 2023Q1

REPORT INFORMATION
  Report Type: Other
  Country: CN (occurrence: None)
  Receive Date: 20230328
  Receipt Date: 20230328
  Transmission Date: 20230417
  Serious: Yes (Death)
  Sender: FDA-Public Use
  Company Number: CN-ROCHE-3318449

PATIENT
  Age: 42 Year
  Sex: Male

DRUGS (2)
  1. CAPECITABINE [Suspect]
     Active Substance: CAPECITABINE
     Indication: Nasopharyngeal cancer recurrent
     Dosage: 4 CYCLE, 25% AND 50% DOSE REDUCTIONS WERE GIVEN
     Route: 048
     Dates: start: 20180927, end: 20181226
  2. APATINIB [Suspect]
     Active Substance: APATINIB
     Indication: Nasopharyngeal cancer recurrent
     Dosage: 4 CYCLE, THE REDUCTION LEVELS FOR APATINIB WERE FROM 500 MG ONCE DAILY, TO 500 MG AND 250 MG ON ALTE
     Route: 065
     Dates: start: 20180927, end: 20181226

REACTIONS (1)
  - Epistaxis [Fatal]
